FAERS Safety Report 8007796-0 (Version None)
Quarter: 2011Q4

REPORT INFORMATION
  Report Type: 
  Country: None (occurrence: None)
  Receive Date: 20111227
  Receipt Date: 20111216
  Transmission Date: 20120403
  Serious: Yes (Other)
  Sender: FDA-Public Use
  Company Number: SE-BAYER-2011-120952

PATIENT
  Sex: Female

DRUGS (2)
  1. MIRENA [Suspect]
     Dosage: UNK
     Dates: end: 20110101
  2. MIRENA [Suspect]
     Dosage: UNK
     Dates: start: 20110101, end: 20110101

REACTIONS (3)
  - DEVICE EXPULSION [None]
  - COMPLICATION OF DEVICE INSERTION [None]
  - GENITAL HAEMORRHAGE [None]
